FAERS Safety Report 5215000-1 (Version None)
Quarter: 2007Q1

REPORT INFORMATION
  Report Type: 
  Country: None (occurrence: None)
  Receive Date: 20070122
  Receipt Date: 20061211
  Transmission Date: 20070707
  Serious: Yes (Death, Hospitalization, Other)
  Sender: FDA-Public Use
  Company Number: US-PFIZER INC-2005024294

PATIENT
  Sex: Female
  Weight: 70.3 kg

DRUGS (1)
  1. CELEBREX [Suspect]
     Indication: INFLAMMATION
     Dates: start: 20020625, end: 20030126

REACTIONS (1)
  - ACUTE MYOCARDIAL INFARCTION [None]
